FAERS Safety Report 4357331-3 (Version None)
Quarter: 2004Q2

REPORT INFORMATION
  Report Type: 
  Country: None (occurrence: None)
  Receive Date: 20040506
  Receipt Date: 20040426
  Transmission Date: 20050107
  Serious: Yes (Other)
  Sender: FDA-Public Use
  Company Number: 2004015875

PATIENT
  Age: 76 Year
  Sex: Male
  Weight: 72.5755 kg

DRUGS (9)
  1. TIKOSYN [Suspect]
     Indication: ATRIAL FIBRILLATION
     Dosage: 1000 MCG (BID),ORAL
     Route: 048
     Dates: start: 20000101
  2. QUINOLONE ANTIBACTERIALS (QUINOLONE ANTIBACTERIALS) [Suspect]
     Indication: INFECTION
  3. TETRACYCLINE [Suspect]
     Indication: SINUSITIS
     Dosage: ORAL
     Route: 048
     Dates: start: 20040101, end: 20040101
  4. DILTIAZEM [Concomitant]
  5. WARFARIN SODIUM [Concomitant]
  6. VITAMINS (VITAMINS) [Concomitant]
  7. FOLIC ACID [Concomitant]
  8. PYRIDOXINE HCL [Concomitant]
  9. CYANOCOBALAMIN (CYANOCOBALAMIN) [Concomitant]

REACTIONS (12)
  - ARRHYTHMIA [None]
  - ATRIAL FIBRILLATION [None]
  - BLOOD UREA INCREASED [None]
  - DRUG INEFFECTIVE [None]
  - HEART RATE INCREASED [None]
  - INTERVERTEBRAL DISC PROTRUSION [None]
  - NERVE COMPRESSION [None]
  - NEUROPATHY PERIPHERAL [None]
  - PCO2 INCREASED [None]
  - SINUSITIS [None]
  - SPINAL COLUMN STENOSIS [None]
  - TACHYPHYLAXIS [None]
